FAERS Safety Report 18159121 (Version 1)
Quarter: 2020Q3

REPORT INFORMATION
  Report Type: Spontaneous
  Country: US (occurrence: US)
  Receive Date: 20200817
  Receipt Date: 20200817
  Transmission Date: 20201103
  Serious: No
  Sender: FDA-Public Use
  Company Number: US-CHIESI USA, INC.-US-2019CHI000446

PATIENT

DRUGS (4)
  1. KENGREAL [Suspect]
     Active Substance: CANGRELOR
     Dosage: 0.75 ?G/KG/MIN, UNK
     Route: 042
     Dates: start: 201911, end: 201911
  2. KENGREAL [Suspect]
     Active Substance: CANGRELOR
     Indication: PERCUTANEOUS CORONARY INTERVENTION
     Dosage: 30 ?G/KG/MIN, UNK
     Route: 042
     Dates: start: 20191109, end: 20191109
  3. KENGREAL [Suspect]
     Active Substance: CANGRELOR
     Dosage: 4 ?G/KG/MIN, UNK
     Route: 042
     Dates: start: 20191109, end: 201911
  4. KENGREAL [Suspect]
     Active Substance: CANGRELOR
     Dosage: 4 ?G/KG/MIN, UNK
     Route: 042
     Dates: start: 201911, end: 201911

REACTIONS (2)
  - Intentional product use issue [Unknown]
  - Platelet function test abnormal [Unknown]

NARRATIVE: CASE EVENT DATE: 201911
